FAERS Safety Report 6920162-1 (Version None)
Quarter: 2010Q3

REPORT INFORMATION
  Report Type: 
  Country: None (occurrence: None)
  Receive Date: 20100809
  Receipt Date: 20100729
  Transmission Date: 20110219
  Serious: Yes (Other)
  Sender: FDA-Public Use
  Company Number: DE-2010-1631

PATIENT
  Sex: Female

DRUGS (4)
  1. NAVELBINE [Suspect]
     Indication: BREAST CANCER METASTATIC
     Dosage: 25 MG/M2 1 X WK IV
     Route: 042
     Dates: start: 20091009, end: 20100715
  2. CORTISON [Concomitant]
  3. IBUPROFEN [Concomitant]
  4. TRAMAL [Concomitant]

REACTIONS (1)
  - CATARACT [None]
